FAERS Safety Report 25394144 (Version 1)
Quarter: 2025Q2

REPORT INFORMATION
  Report Type: Spontaneous
  Country: US (occurrence: US)
  Receive Date: 20250604
  Receipt Date: 20250604
  Transmission Date: 20250717
  Serious: No
  Sender: AMNEAL
  Company Number: US-AMNEAL PHARMACEUTICALS-2024-AMRX-02029

PATIENT
  Age: 49 Year
  Sex: Female
  Weight: 29.478 kg

DRUGS (1)
  1. BUPRENORPHINE TRANSDERMAL SYSTEM [Suspect]
     Active Substance: BUPRENORPHINE
     Indication: Pain
     Route: 062
     Dates: start: 2024

REACTIONS (3)
  - Drug ineffective [Unknown]
  - Product adhesion issue [Unknown]
  - No adverse event [Unknown]

NARRATIVE: CASE EVENT DATE: 20240519
